FAERS Safety Report 9609847 (Version 1)
Quarter: 2013Q4

REPORT INFORMATION
  Report Type: Spontaneous
  Country: US (occurrence: US)
  Receive Date: 20131009
  Receipt Date: 20131009
  Transmission Date: 20140711
  Serious: No
  Sender: FDA-Public Use
  Company Number: US-PURDUE-USA-2012-0095922

PATIENT
  Age: 33 Year
  Sex: Male

DRUGS (2)
  1. BUTRANS [Suspect]
     Indication: SPINAL FUSION SURGERY
     Dosage: 20 MCG, UNK
     Route: 062
     Dates: start: 20121113
  2. BUTRANS [Suspect]
     Indication: NEURALGIA

REACTIONS (3)
  - Application site erythema [Unknown]
  - Product colour issue [Unknown]
  - Application site discharge [Unknown]
